FAERS Safety Report 9028990 (Version 1)
Quarter: 2013Q1

REPORT INFORMATION
  Report Type: Spontaneous
  Country: US (occurrence: US)
  Receive Date: 20130123
  Receipt Date: 20130123
  Transmission Date: 20140127
  Serious: Yes (Hospitalization)
  Sender: FDA-Public Use
  Company Number: US-BRISTOL-MYERS SQUIBB COMPANY-17296419

PATIENT
  Age: 76 Year
  Sex: Female
  Weight: 41.72 kg

DRUGS (1)
  1. WARFARIN SODIUM [Suspect]
     Indication: CARDIAC DISORDER

REACTIONS (2)
  - Fall [Unknown]
  - Dizziness [Unknown]
